FAERS Safety Report 20003699 (Version 1)
Quarter: 2021Q4

REPORT INFORMATION
  Report Type: Spontaneous
  Country: US (occurrence: US)
  Receive Date: 20211027
  Receipt Date: 20211027
  Transmission Date: 20220303
  Serious: No
  Sender: FDA-Public Use
  Company Number: US-BIODELIVERY SCIENCES INTERNATIONAL-2021BDSI0464

PATIENT
  Age: 75 Year
  Sex: Female

DRUGS (1)
  1. BUPRENORPHINE [Suspect]
     Active Substance: BUPRENORPHINE
     Indication: Pain
     Route: 002
     Dates: start: 2021

REACTIONS (8)
  - Wrong technique in product usage process [Unknown]
  - Therapeutic response decreased [Unknown]
  - Incorrect route of product administration [Recovered/Resolved]
  - Nausea [Recovered/Resolved]
  - Product adhesion issue [Unknown]
  - Product physical issue [Unknown]
  - Product solubility abnormal [Unknown]
  - Oral administration complication [Unknown]

NARRATIVE: CASE EVENT DATE: 20210101
